FAERS Safety Report 4926783-X (Version None)
Quarter: 2006Q1

REPORT INFORMATION
  Report Type: 
  Country: None (occurrence: None)
  Receive Date: 20060228
  Receipt Date: 20050614
  Transmission Date: 20060701
  Serious: No
  Sender: FDA-Public Use
  Company Number: US-GLAXOSMITHKLINE-A0562648A

PATIENT
  Age: 50 Year
  Sex: Female

DRUGS (3)
  1. LAMICTAL [Suspect]
     Indication: BIPOLAR DISORDER
     Route: 048
     Dates: start: 20050531, end: 20050613
  2. WELLBUTRIN [Concomitant]
  3. ADDERALL 10 [Concomitant]
     Route: 065

REACTIONS (7)
  - BACK PAIN [None]
  - DIZZINESS [None]
  - INSOMNIA [None]
  - MICTURITION DISORDER [None]
  - PYREXIA [None]
  - URINE OUTPUT DECREASED [None]
  - WEIGHT INCREASED [None]
